FAERS Safety Report 7242024-5 (Version None)
Quarter: 2011Q1

REPORT INFORMATION
  Report Type: 
  Country: None (occurrence: None)
  Receive Date: 20110124
  Receipt Date: 20110111
  Transmission Date: 20110831
  Serious: Yes (Other)
  Sender: FDA-Public Use
  Company Number: FR-MYLANLABS-2009S1017464

PATIENT
  Age: 40 Year
  Sex: Male

DRUGS (2)
  1. TRAMADOL [Suspect]
     Indication: BACK PAIN
  2. TRAMADOL [Suspect]

REACTIONS (2)
  - TIC [None]
  - DRUG ABUSE [None]
